FAERS Safety Report 15112531 (Version 2)
Quarter: 2018Q3

REPORT INFORMATION
  Report Type: Spontaneous
  Country: US (occurrence: JP)
  Receive Date: 20180705
  Receipt Date: 20180917
  Transmission Date: 20181010
  Serious: Yes (Hospitalization, Other)
  Sender: FDA-Public Use
  Company Number: US-SUNOVION-2018SUN002644

PATIENT
  Sex: Male

DRUGS (1)
  1. INDACATEROL [Suspect]
     Active Substance: INDACATEROL
     Indication: CHRONIC OBSTRUCTIVE PULMONARY DISEASE
     Dosage: 150 ?G, UNK
     Route: 055

REACTIONS (8)
  - Decreased appetite [Unknown]
  - Sputum retention [Unknown]
  - Productive cough [Unknown]
  - Sputum increased [Recovered/Resolved]
  - Cough [Recovered/Resolved]
  - Pyrexia [Recovering/Resolving]
  - Lung infiltration [Unknown]
  - Pneumonia [Recovered/Resolved]
